FAERS Safety Report 5924637-3 (Version None)
Quarter: 2008Q4

REPORT INFORMATION
  Report Type: 
  Country: None (occurrence: None)
  Receive Date: 20081016
  Receipt Date: 20080929
  Transmission Date: 20090506
  Serious: Yes (Other)
  Sender: FDA-Public Use
  Company Number: 002#8#2008-00693

PATIENT
  Age: 45 Year
  Sex: Female

DRUGS (3)
  1. ALPRAZOLAM [Suspect]
     Indication: MAJOR DEPRESSION
     Dates: start: 20051028, end: 20060301
  2. VENLAFAXINE HCL EXTENDED-RELEASE [Suspect]
     Indication: MAJOR DEPRESSION
     Dates: start: 20051028, end: 20060301
  3. ZOLPIDEM [Suspect]
     Indication: MAJOR DEPRESSION
     Dates: start: 20051028, end: 20060301

REACTIONS (2)
  - ASPHYXIA [None]
  - SUICIDE ATTEMPT [None]
